FAERS Safety Report 18864023 (Version 2)
Quarter: 2021Q1

REPORT INFORMATION
  Report Type: Spontaneous
  Country: JP (occurrence: JP)
  Receive Date: 20210208
  Receipt Date: 20210216
  Transmission Date: 20210420
  Serious: Yes (Other)
  Sender: FDA-Public Use
  Company Number: JP-TAKEDA-2021TJP003254

PATIENT
  Age: 83 Year

DRUGS (5)
  1. ACTOS [Suspect]
     Active Substance: PIOGLITAZONE HYDROCHLORIDE
     Indication: PRODUCT USED FOR UNKNOWN INDICATION
     Dosage: DOSAGE IS UNKNOWN
     Route: 048
  2. GLACTIV [Concomitant]
     Active Substance: SITAGLIPTIN
     Dosage: DOSAGE IS UNKNOWN
     Route: 048
  3. MIGLITOL. [Concomitant]
     Active Substance: MIGLITOL
     Dosage: JUST BEFORE MEALDOSAGE IS UNKNOWN, TID
     Route: 048
  4. CANAGLU [Concomitant]
     Active Substance: CANAGLIFLOZIN
     Dosage: DOSAGE IS UNKNOWN
     Route: 048
  5. GLIMEPIRIDE. [Concomitant]
     Active Substance: GLIMEPIRIDE
     Dosage: DOSAGE IS UNKNOWN
     Route: 048

REACTIONS (1)
  - Cataract [Unknown]
